FAERS Safety Report 8923816 (Version 1)
Quarter: 2012Q4

REPORT INFORMATION
  Report Type: 
  Country: JP (occurrence: JP)
  Receive Date: 20121126
  Receipt Date: 20121126
  Transmission Date: 20130627
  Serious: Yes (Hospitalization)
  Sender: FDA-Public Use
  Company Number: JP-ASTRAZENECA-2012SE87863

PATIENT

DRUGS (3)
  1. BLOPRESS [Suspect]
     Indication: PRODUCT USED FOR UNKNOWN INDICATION
     Route: 048
     Dates: start: 20121113
  2. MAINTATE [Suspect]
     Route: 048
     Dates: start: 20121113
  3. HERBESSER [Suspect]
     Route: 065
     Dates: start: 20121113

REACTIONS (1)
  - Circulatory collapse [Unknown]
